FAERS Safety Report 6920064-0 (Version None)
Quarter: 2010Q3

REPORT INFORMATION
  Report Type: 
  Country: None (occurrence: None)
  Receive Date: 20100730
  Receipt Date: 20091015
  Transmission Date: 20110219
  Serious: Yes (Hospitalization)
  Sender: FDA-Public Use
  Company Number: OMPQ-PR-0910S-0888

PATIENT
  Age: 73 Year
  Sex: Female

DRUGS (4)
  1. OMNIPAQUE 140 [Suspect]
     Indication: CAROTID ARTERY STENOSIS
     Dosage: 60 ML, SINGLE DOSE, I.V.
     Route: 042
     Dates: start: 20090929, end: 20090929
  2. PREDNISONE [Concomitant]
  3. TAGAMET [Concomitant]
  4. DIPHENHYDRAMINE (BENADRYL) [Concomitant]

REACTIONS (2)
  - HYPERSENSITIVITY [None]
  - RASH [None]
